FAERS Safety Report 25829662 (Version 2)
Quarter: 2025Q4

REPORT INFORMATION
  Report Type: Spontaneous
  Country: EU (occurrence: EU)
  Receive Date: 20250922
  Receipt Date: 20251017
  Transmission Date: 20260118
  Serious: Yes (Other)
  Sender: AUROBINDO
  Company Number: EU-ABBVIE-6376513

PATIENT
  Age: 72 Year
  Sex: Male

DRUGS (16)
  1. CLOZAPINE [Suspect]
     Active Substance: CLOZAPINE
     Indication: Product used for unknown indication
     Dosage: 25 MILLIGRAM, AT BED TIME
     Route: 048
     Dates: start: 202507, end: 202507
  2. CLOZAPINE [Suspect]
     Active Substance: CLOZAPINE
     Dosage: 25 MILLIGRAM, AT BED TIME
     Route: 048
     Dates: start: 202507, end: 202508
  3. CLOZAPINE [Suspect]
     Active Substance: CLOZAPINE
     Dosage: 1.5 MILLIGRAM, AT BED TIME
     Route: 048
     Dates: start: 202508
  4. QUETIAPINE [Suspect]
     Active Substance: QUETIAPINE
     Indication: Product used for unknown indication
     Dosage: UNK
     Route: 065
     Dates: start: 202508
  5. CARBIDOPA [Suspect]
     Active Substance: CARBIDOPA
     Indication: Parkinson^s disease
     Dosage: UNK (240 MG + 12 MG.FREQUENCY: LO:1.2;HI:0.43;BA:0.36;LOW:0.27;EX:0.3, LAST ADMIN DATE: 2025)
     Route: 058
     Dates: start: 20250519
  6. CARBIDOPA [Suspect]
     Active Substance: CARBIDOPA
     Dosage: UNK (240 MG + 12 MG, FREQUENCY TEXT: LO:1.2;HI:0.54;BA:0.51;LOW:0.45;EX:0.3,FIRST ADMIN DATE: 2025)
     Route: 058
     Dates: start: 2025, end: 20250728
  7. CARBIDOPA [Suspect]
     Active Substance: CARBIDOPA
     Dosage: UNK (240 MG + 12 MG,FREQUENCY: LO:1.2;HI:0.45;BA:0.42;LOW:0.3;EX:0.3)
     Route: 058
     Dates: start: 20250728, end: 20250806
  8. CARBIDOPA [Suspect]
     Active Substance: CARBIDOPA
     Dosage: UNK (240 MG + 12 MG (16H), FREQUENCY: LO:1.2;HI:0.45;BA:0.42;LOW:0.3;EX:0.3)
     Route: 058
     Dates: start: 20250806
  9. PITAVASTATIN [Concomitant]
     Active Substance: PITAVASTATIN
     Indication: Product used for unknown indication
     Dosage: UNK
     Route: 065
  10. XADAGO [Concomitant]
     Active Substance: SAFINAMIDE MESYLATE
     Indication: Product used for unknown indication
     Dosage: UNK
     Route: 065
     Dates: end: 202507
  11. Cloxan [Concomitant]
     Indication: Product used for unknown indication
     Dosage: UNK
     Route: 065
  12. HYDROCHLOROTHIAZIDE\LOSARTAN [Concomitant]
     Active Substance: HYDROCHLOROTHIAZIDE\LOSARTAN
     Indication: Product used for unknown indication
     Dosage: UNK
     Route: 065
  13. NORVASC [Concomitant]
     Active Substance: AMLODIPINE BESYLATE
     Indication: Product used for unknown indication
     Dosage: UNK
     Route: 065
  14. MIRABEGRON [Concomitant]
     Active Substance: MIRABEGRON
     Indication: Product used for unknown indication
     Dosage: UNK
     Route: 065
  15. ONGENTYS [Concomitant]
     Active Substance: OPICAPONE
     Indication: Product used for unknown indication
     Dosage: UNK (
     Route: 065
  16. AMANTADINE HYDROCHLORIDE [Concomitant]
     Active Substance: AMANTADINE HYDROCHLORIDE
     Indication: Product used for unknown indication
     Dosage: UNK
     Route: 065
     Dates: end: 202507

REACTIONS (5)
  - Hallucination, visual [Recovered/Resolved]
  - Delirium [Recovered/Resolved]
  - Dyskinesia [Not Recovered/Not Resolved]
  - Somnolence [Not Recovered/Not Resolved]
  - Off label use [Not Recovered/Not Resolved]

NARRATIVE: CASE EVENT DATE: 20250501
